FAERS Safety Report 20774309 (Version 1)
Quarter: 2022Q2

REPORT INFORMATION
  Report Type: Spontaneous
  Country: CA (occurrence: CA)
  Receive Date: 20220502
  Receipt Date: 20220502
  Transmission Date: 20220721
  Serious: Yes (Other)
  Sender: FDA-Public Use
  Company Number: CA-TEVA-2022-CA-2031664

PATIENT
  Age: 49 Year
  Sex: Male

DRUGS (1)
  1. FENTANYL [Suspect]
     Active Substance: FENTANYL
     Indication: Product used for unknown indication
     Dosage: 1 GRAM DAILY;
     Route: 065

REACTIONS (8)
  - Diarrhoea [Unknown]
  - Drug use disorder [Unknown]
  - Drug withdrawal syndrome [Unknown]
  - Emotional distress [Unknown]
  - Hyperhidrosis [Unknown]
  - Nausea [Unknown]
  - Overdose [Unknown]
  - Tearfulness [Unknown]
